FAERS Safety Report 4587423-5 (Version None)
Quarter: 2005Q1

REPORT INFORMATION
  Report Type: 
  Country: None (occurrence: None)
  Receive Date: 20050218
  Receipt Date: 20041104
  Transmission Date: 20050727
  Serious: Yes (Other)
  Sender: FDA-Public Use
  Company Number: JP-ABBOTT-04P-087-0282419-00

PATIENT
  Age: 56 Year
  Sex: Female
  Weight: 33 kg

DRUGS (35)
  1. SEVORANE LIQUID FOR INHALATION [Suspect]
     Indication: ANAESTHESIA
     Dosage: 0.5-2%
     Route: 055
  2. FUROSEMIDE [Suspect]
     Indication: CARDIAC FAILURE
     Route: 065
  3. FUROSEMIDE [Suspect]
     Indication: URINE OUTPUT DECREASED
     Route: 042
  4. TRICHLORMETHIAZIDE [Suspect]
     Indication: CARDIAC FAILURE
     Route: 065
  5. RANITIDINE HYDROCHLORIDE [Suspect]
     Indication: PREMEDICATION
     Route: 065
  6. THIAMYLAL SODIUM [Suspect]
     Indication: INDUCTION OF ANAESTHESIA
     Route: 042
  7. NITROUS OXIDE [Suspect]
     Indication: INDUCTION OF ANAESTHESIA
     Route: 055
  8. FENTANYL CITRATE [Suspect]
     Indication: EPIDURAL ANAESTHESIA
     Route: 008
  9. FENTANYL CITRATE [Suspect]
     Dosage: 10 MICROGRAMS/HR
     Route: 008
  10. LIDOCAINE HCL [Suspect]
     Indication: LOCAL ANAESTHESIA
     Dosage: ROUTE T1
  11. BUPIVACAINE HCL [Suspect]
     Indication: EPIDURAL ANAESTHESIA
     Route: 008
  12. BUPIVACAINE HCL [Suspect]
     Dosage: 1 MILLIGRAM/HOUR
     Route: 008
  13. DIAZEPAM [Concomitant]
     Indication: PREMEDICATION
     Dosage: PRE-ANESTHETIC DOSAGES
     Route: 048
  14. VECURONIUM BROMIDE [Concomitant]
     Indication: MUSCLE RELAXANT THERAPY
     Route: 042
  15. DOPAMINE HCL [Concomitant]
     Indication: CARDIAC FAILURE
     Dosage: ^DR^
  16. DOPAMINE HCL [Concomitant]
     Indication: HYPOTENSIVE ANAESTHESIA PROCEDURE
  17. ALPROSTADIL [Concomitant]
     Indication: CARDIAC FAILURE
     Dosage: ^DR^
  18. ALPROSTADIL [Concomitant]
     Indication: HYPOTENSIVE ANAESTHESIA PROCEDURE
  19. NITROGLYCERIN [Concomitant]
     Indication: CARDIAC FAILURE
     Dosage: ^DR^
  20. NITROGLYCERIN [Concomitant]
     Indication: HYPOTENSIVE ANAESTHESIA PROCEDURE
  21. INSULIN [Concomitant]
     Indication: DIABETES MELLITUS
     Dosage: ^DR^
  22. RANITIDINE [Concomitant]
     Indication: PREMEDICATION
     Route: 048
  23. THIAMIRAL [Concomitant]
     Indication: ANAESTHESIA
     Dosage: NOT REPORTED, NOT REPORTED
  24. VECURONIUM [Concomitant]
     Indication: ANAESTHESIA
     Dosage: NOT REPORTED, NOT REPORTED
  25. FENTANYL [Concomitant]
     Indication: ANAESTHESIA
     Dosage: NOT REPORTED, NOT REPORTED
  26. FENTANYL [Concomitant]
  27. FENTANYL [Concomitant]
     Dosage: 10 MCG/HOUR, NOT REPORTED
     Route: 008
  28. NITROUS OXIDE [Concomitant]
     Indication: GENERAL ANAESTHESIA
     Dosage: 3 L/MIN, NOT REPORTED, NOT REPORTED
  29. OXYGEN [Concomitant]
     Indication: GENERAL ANAESTHESIA
     Dosage: 2 L/MIN, NOT REPORTED, NOT REPORTED
  30. INSULIN [Concomitant]
     Indication: BLOOD GLUCOSE
     Dosage: CONTINUOUS INTRAVENOUS INTRODUCTION OF REGULAR INSULIN AT 2 UNITS/HOUR,NOT REPORTED, NOT REPORTED
     Route: 042
  31. LIDOCAINE [Concomitant]
     Indication: LOCAL ANAESTHESIA
     Dosage: 0.5%, NOT REPORTED, NOT REPORTED
  32. BUPIVACAINE [Concomitant]
     Indication: EPIDURAL ANAESTHESIA
     Dosage: 10 ML OF 0.125%, NOT REPORTED
     Route: 008
  33. BUPIVACAINE [Concomitant]
     Dosage: 1ML/HOUR, NOT REPORTED
     Route: 008
  34. FUROSEMIDE [Concomitant]
     Indication: URINE OUTPUT
     Dosage: NOT REPORTED, NOT REPORTED
  35. URINASTATIN [Concomitant]
     Indication: SHOCK
     Dosage: 100,000 UNITS, NOT REPORTED, NOT REPORTED

REACTIONS (6)
  - ANAEMIA [None]
  - ANAESTHETIC COMPLICATION [None]
  - BLOOD GLUCOSE DECREASED [None]
  - FLATULENCE [None]
  - PANCREATITIS ACUTE [None]
  - SHOCK [None]
